FAERS Safety Report 9346156 (Version 1)
Quarter: 2013Q2

REPORT INFORMATION
  Report Type: Spontaneous
  Country: US (occurrence: US)
  Receive Date: 20130613
  Receipt Date: 20130613
  Transmission Date: 20140414
  Serious: No
  Sender: FDA-Public Use
  Company Number: US-BIOGENIDEC-2013BI051640

PATIENT
  Sex: Female

DRUGS (1)
  1. AVONEX [Suspect]
     Indication: MULTIPLE SCLEROSIS
     Route: 030
     Dates: start: 19991007

REACTIONS (5)
  - Memory impairment [Unknown]
  - Injury associated with device [Unknown]
  - Contusion [Unknown]
  - Anxiety [Unknown]
  - Musculoskeletal stiffness [Unknown]
